FAERS Safety Report 4412590-3 (Version None)
Quarter: 2004Q2

REPORT INFORMATION
  Report Type: 
  Country: None (occurrence: None)
  Receive Date: 20040630
  Receipt Date: 20040413
  Transmission Date: 20050107
  Serious: No
  Sender: FDA-Public Use
  Company Number: 04P-163-0257187-00

PATIENT
  Age: 56 Year
  Sex: Female
  Weight: 123.3784 kg

DRUGS (11)
  1. HUMIRA [Suspect]
     Indication: ARTHRITIS
     Dosage: 40 MG, 1 IN 2 WK, SUBCUTANEOUS
     Route: 058
     Dates: start: 20031109, end: 20031101
  2. HUMIRA [Suspect]
     Indication: ARTHRITIS
     Dosage: 40 MG, 1 IN 2 WK, SUBCUTANEOUS
     Route: 058
     Dates: start: 20040101, end: 20040201
  3. LEVOTHYROXINE SODIUM [Concomitant]
  4. METHADONE HCL [Concomitant]
  5. FENTANYL CITRATE [Concomitant]
  6. BUCINDOLOL HYDROCHLORIDE [Concomitant]
  7. FLUOXETINE HCL [Concomitant]
  8. CLARINEX [Concomitant]
  9. NAPROXEN SODIUM [Concomitant]
  10. DIAZEPAM [Concomitant]
  11. PROCHLORPERAZINE EDISYLATE [Concomitant]

REACTIONS (1)
  - CELLULITIS [None]
